FAERS Safety Report 9980862 (Version 1)
Quarter: 2014Q1

REPORT INFORMATION
  Report Type: Spontaneous
  Country: JP (occurrence: JP)
  Receive Date: 20140307
  Receipt Date: 20140307
  Transmission Date: 20141002
  Serious: Yes (Other)
  Sender: FDA-Public Use
  Company Number: JP-ROCHE-1356921

PATIENT
  Age: 83 Year
  Sex: Female

DRUGS (1)
  1. RIVOTRIL [Suspect]
     Indication: STATUS EPILEPTICUS
     Dosage: DOSAGE IS UNCERTAIN.
     Route: 048

REACTIONS (2)
  - Pharyngeal oedema [Unknown]
  - Upper airway obstruction [Unknown]
